FAERS Safety Report 18642690 (Version 1)
Quarter: 2020Q4

REPORT INFORMATION
  Report Type: Spontaneous
  Country: GB (occurrence: GB)
  Receive Date: 20201221
  Receipt Date: 20201221
  Transmission Date: 20210114
  Serious: Yes (Hospitalization, Other)
  Sender: FDA-Public Use
  Company Number: GB-AMGEN-GBRSP2020207198

PATIENT
  Age: 38 Year
  Sex: Male
  Weight: 62 kg

DRUGS (1)
  1. NEUPOGEN [Suspect]
     Active Substance: FILGRASTIM
     Indication: STEM CELL DONOR
     Dosage: 780 MICROGRAM, QD
     Route: 058
     Dates: start: 20201126, end: 20201201

REACTIONS (2)
  - Abdominal pain [Unknown]
  - Splenic rupture [Recovering/Resolving]

NARRATIVE: CASE EVENT DATE: 20201202
